FAERS Safety Report 8499445-2 (Version None)
Quarter: 2012Q3

REPORT INFORMATION
  Report Type: 
  Country: None (occurrence: None)
  Receive Date: 20120710
  Receipt Date: 20120705
  Transmission Date: 20120928
  Serious: Yes (Other)
  Sender: FDA-Public Use
  Company Number: US-SANOFI-AVENTIS-2012SA047642

PATIENT
  Weight: 0.24 kg

DRUGS (3)
  1. FLECAINIDE ACETATE [Suspect]
     Route: 064
  2. DILTIAZEM HCL [Suspect]
     Route: 064
  3. ENOXAPARIN SODIUM [Suspect]
     Route: 064

REACTIONS (2)
  - FOETAL EXPOSURE DURING PREGNANCY [None]
  - LOW BIRTH WEIGHT BABY [None]
